FAERS Safety Report 11591220 (Version 1)
Quarter: 2015Q4

REPORT INFORMATION
  Report Type: Spontaneous
  Country: IT (occurrence: IT)
  Receive Date: 20151004
  Receipt Date: 20151004
  Transmission Date: 20160304
  Serious: Yes (Other)
  Sender: FDA-Public Use
  Company Number: IT-TEVA-597919ISR

PATIENT
  Age: 77 Year
  Sex: Female

DRUGS (1)
  1. LITHIUM. [Suspect]
     Active Substance: LITHIUM
     Indication: AFFECTIVE DISORDER
     Dosage: 450 MILLIGRAM DAILY;
     Route: 065

REACTIONS (5)
  - Tremor [Unknown]
  - Toxicity to various agents [Unknown]
  - Dysarthria [Unknown]
  - Confusional state [Unknown]
  - Ataxia [Unknown]
